FAERS Safety Report 7308132-5 (Version None)
Quarter: 2011Q1

REPORT INFORMATION
  Report Type: 
  Country: None (occurrence: None)
  Receive Date: 20110223
  Receipt Date: 20110217
  Transmission Date: 20110831
  Serious: Yes (Hospitalization)
  Sender: FDA-Public Use
  Company Number: CO-ROCHE-745066

PATIENT
  Sex: Male

DRUGS (2)
  1. INSULIN [Concomitant]
     Dosage: FREQUENCY QD
     Route: 058
  2. AVASTIN [Suspect]
     Dosage: LAST INFUSION WAS ON 12 JANUARY 2011
     Route: 042
     Dates: start: 20101007

REACTIONS (3)
  - DIZZINESS [None]
  - HYPOGLYCAEMIA [None]
  - CONVULSION [None]
